FAERS Safety Report 22219779 (Version 1)
Quarter: 2023Q2

REPORT INFORMATION
  Report Type: Spontaneous
  Country: US (occurrence: US)
  Receive Date: 20230417
  Receipt Date: 20230417
  Transmission Date: 20230722
  Serious: Yes (Other)
  Sender: FDA-Public Use
  Company Number: US-JNJFOC-20230417741

PATIENT
  Age: 51 Year
  Sex: Female

DRUGS (3)
  1. ERDAFITINIB [Suspect]
     Active Substance: ERDAFITINIB
     Indication: Squamous cell carcinoma
     Route: 065
  2. ERDAFITINIB [Suspect]
     Active Substance: ERDAFITINIB
     Dosage: FOR ONE MONTH
     Route: 065
  3. ERDAFITINIB [Suspect]
     Active Substance: ERDAFITINIB
     Dosage: FOR SEVEN MONTHS
     Route: 065

REACTIONS (8)
  - Ulcerative keratitis [Unknown]
  - Fatigue [Unknown]
  - Diarrhoea [Unknown]
  - Weight decreased [Unknown]
  - Hyperphosphataemia [Unknown]
  - Onycholysis [Unknown]
  - Palmar-plantar erythrodysaesthesia syndrome [Unknown]
  - Off label use [Unknown]
